FAERS Safety Report 8839490 (Version 1)
Quarter: 2012Q4

REPORT INFORMATION
  Report Type: Spontaneous
  Country: US (occurrence: None)
  Receive Date: 20121012
  Receipt Date: 20121012
  Transmission Date: 20130627
  Serious: Yes (Other)
  Sender: FDA-Public Use
  Company Number: None

PATIENT
  Age: 12 Year
  Sex: Male
  Weight: 32.4 kg

DRUGS (1)
  1. BOTOX [Suspect]
     Indication: SPASTICITY
     Dosage: 300 units, 1x, IM
     Route: 030
     Dates: start: 20120726, end: 20120726

REACTIONS (1)
  - Hypotonia [None]
